FAERS Safety Report 6707027-5 (Version None)
Quarter: 2010Q2

REPORT INFORMATION
  Report Type: 
  Country: None (occurrence: None)
  Receive Date: 20100429
  Receipt Date: 20100421
  Transmission Date: 20101027
  Serious: Yes (Hospitalization, Other)
  Sender: FDA-Public Use
  Company Number: 2010SP023299

PATIENT
  Age: 3 Year
  Sex: Male

DRUGS (1)
  1. SALICYLIC ACID [Suspect]
     Indication: ACCIDENTAL EXPOSURE
     Dosage: PO
     Route: 048

REACTIONS (9)
  - ACCIDENTAL DRUG INTAKE BY CHILD [None]
  - CRYING [None]
  - DIET REFUSAL [None]
  - OESOPHAGEAL STENOSIS [None]
  - OESOPHAGEAL ULCER [None]
  - ORAL PAIN [None]
  - OROPHARYNGEAL PAIN [None]
  - RETCHING [None]
  - VOMITING [None]
